FAERS Safety Report 15299704 (Version 2)
Quarter: 2020Q3

REPORT INFORMATION
  Report Type: Spontaneous
  Country: NL (occurrence: NL)
  Receive Date: 20180821
  Receipt Date: 20200929
  Transmission Date: 20201102
  Serious: Yes (Death, Other)
  Sender: FDA-Public Use
  Company Number: NL-TEVA-2018-NL-944532

PATIENT
  Age: 67 Year
  Sex: Female
  Weight: 75.5 kg

DRUGS (13)
  1. OXYCODON TABLET 10MG / BRAND NAME NOT SPECIFIED [Concomitant]
     Active Substance: OXYCODONE
     Dosage: 10 MILLIGRAM, IF NECESSARY 6 X PER DAY 10 MILLIGRAM MAXIMUM 6X DAILY, THERAPY START DATE: ASKU, THER
  2. OXAZEPAM TABLET 10MG / BRAND NAME NOT SPECIFIED [Concomitant]
     Active Substance: OXAZEPAM
     Dosage: 10 MILLIGRAM DAILY; IF NECESSARY, 10 MILLIGRAMS ONCE A DAY,THERAPY START DATE: ASKU, THERAPY END DAT
  3. OXYCODON TABLET MGA 5MG / BRAND NAME NOT SPECIFIED [Concomitant]
     Active Substance: OXYCODONE
     Dosage: 40 MILLIGRAM DAILY;  2X PER DAY 10 MG, THERAPY START DATE: ASKU, THERAPY END DATE:ASKU
  4. NADROPARINE INJVLST 9500IE/ML / BRAND NAME NOT SPECIFIED [Concomitant]
     Dosage: 1 DOSAGE FORMS, AT START DIALYSIS 0.6 ML, ONLY ADMINISTER ON DIALYSIS DAYS,THERAPY START DATE: ASKU,
  5. LEVOMEPROMAZINE TABLET 12,5MG (WATERSTOFMALEAAT) / BRAND NAME NOT SPEC [Concomitant]
     Active Substance: LEVOMEPROMAZINE
     Dosage: 12.5 MILLIGRAM DAILY; 1 X PER DAY 12.5 MILLIGRAMS,THERAPY START DATE: ASKU, THERAPY END DATE:ASKU
  6. LORMETAZEPAM TABLET 2MG / BRAND NAME NOT SPECIFIED [Concomitant]
     Dosage: 2 MILLIGRAM DAILY; THERAPY START DATE: ASKU, THERAPY END DATE:ASKU
  7. ALTEPLASE INFUSIEPOEDER 20MG / BRAND NAME NOT SPECIFIED [Concomitant]
     Active Substance: ALTEPLASE
     Dosage: 1 DOSAGE FORMS, AT CENTER DIALYSIS 2.3 / 2.4 ML IN TESIOCATHETER CALCULATED, THERAPY START DATE: ASK
  8. TAUROLIDINE INSTILLATIEVLST 20MG/ML / BRAND NAME NOT SPECIFIED [Concomitant]
     Active Substance: TAUROLIDINE
     Dosage: THERAPY START DATE: ASKU, THERAPY END DATE:ASKU
     Route: 065
  9. SEVELAMEER TABLET 800MG (CARBONAAT) / BRAND NAME NOT SPECIFIED [Concomitant]
     Active Substance: SEVELAMER
     Dosage: 14400 MILLIGRAM DAILY; 3 X PER DAY 1600 MILLIGRAM, THERAPY START DATE: ASKU, THERAPY END DATE:ASKU
     Route: 065
  10. QUETIAPINE TABLET MGA 300MG / BRAND NAME NOT SPECIFIED [Concomitant]
     Active Substance: QUETIAPINE
     Dosage: 300 MILLIGRAM DAILY; THERAPY START DATE: ASKU, THERAPY END DATE:ASKU
  11. DARBEPOETINE ALFA INJVLST 500UG/ML / ARANESP 150 INJVLST 500MCG/ML WWS [Concomitant]
     Dosage: 150MCG ONCE A WEEK,THERAPY START DATE: ASKU, THERAPY END DATE:ASKU
  12. PACLITAXEL INFOPL CONC 6MG/ML / BRAND NAME NOT SPECIFIED [Suspect]
     Active Substance: PACLITAXEL
     Indication: BREAST CANCER METASTATIC
     Dosage: 129 MILLIGRAM DAILY; (IV), 1 X PER DAY,THERAPY END DATE:ASKU
     Route: 065
     Dates: start: 201807
  13. MULTIVITAMINEN [Concomitant]
     Dosage: 1 DOSAGE FORMS DAILY; 1XPER DAY 1 PIECE IS CHANGED,THERAPY START DATE: ASKU, THERAPY END DATE:ASKU

REACTIONS (2)
  - Febrile neutropenia [Unknown]
  - Colitis [Unknown]

NARRATIVE: CASE EVENT DATE: 20180716
